FAERS Safety Report 21616025 (Version 1)
Quarter: 2022Q4

REPORT INFORMATION
  Report Type: Spontaneous
  Country: US (occurrence: US)
  Receive Date: 20221118
  Receipt Date: 20221118
  Transmission Date: 20230113
  Serious: No
  Sender: FDA-Public Use
  Company Number: US-BRISTOL-MYERS SQUIBB COMPANY-2022-139353

PATIENT
  Age: 79 Year
  Sex: Male

DRUGS (1)
  1. REVLIMID [Suspect]
     Active Substance: LENALIDOMIDE
     Indication: Product used for unknown indication
     Dosage: FREQ: 1 CAPSULE EVERDAT 21 DAYS AND 7 DAYS OFF
     Route: 048
     Dates: start: 20221020

REACTIONS (2)
  - Peripheral swelling [Unknown]
  - Hiccups [Unknown]
